FAERS Safety Report 4972926-1 (Version None)
Quarter: 2006Q2

REPORT INFORMATION
  Report Type: 
  Country: None (occurrence: None)
  Receive Date: 20060414
  Receipt Date: 20050921
  Transmission Date: 20061013
  Serious: No
  Sender: FDA-Public Use
  Company Number: US-BRISTOL-MYERS SQUIBB COMPANY-13118138

PATIENT
  Sex: Female
  Weight: 53 kg

DRUGS (1)
  1. LAC-HYDRIN [Suspect]

REACTIONS (1)
  - DRUG INEFFECTIVE [None]
